FAERS Safety Report 22003585 (Version 2)
Quarter: 2023Q1

REPORT INFORMATION
  Report Type: Spontaneous
  Country: US (occurrence: US)
  Receive Date: 20230217
  Receipt Date: 20230223
  Transmission Date: 20230418
  Serious: No
  Sender: FDA-Public Use
  Company Number: US-AMGEN-USASP2023025165

PATIENT
  Sex: Female

DRUGS (4)
  1. NEUPOGEN [Suspect]
     Active Substance: FILGRASTIM
     Indication: White blood cell count decreased
     Dosage: UNK LOW DOSE
     Route: 058
     Dates: start: 202102
  2. NEUPOGEN [Suspect]
     Active Substance: FILGRASTIM
     Indication: Myelodysplastic syndrome
     Dosage: UNK UNK, QWK ON THURSDAY (HIGH DOSE)
     Route: 058
  3. NEUPOGEN [Suspect]
     Active Substance: FILGRASTIM
     Indication: Platelet count decreased
  4. ATIVAN [Concomitant]
     Active Substance: LORAZEPAM
     Indication: Anxiety
     Dosage: UNK

REACTIONS (4)
  - Inappropriate schedule of product administration [Unknown]
  - Nausea [Recovering/Resolving]
  - Decreased appetite [Recovered/Resolved]
  - Epistaxis [Not Recovered/Not Resolved]

NARRATIVE: CASE EVENT DATE: 20230209
